FAERS Safety Report 9691036 (Version 3)
Quarter: 2014Q1

REPORT INFORMATION
  Report Type: Report from Study
  Country: US (occurrence: US)
  Receive Date: 20131115
  Receipt Date: 20140312
  Transmission Date: 20141002
  Serious: Yes (Life-Threatening, Hospitalization, Other)
  Sender: FDA-Public Use
  Company Number: US-GLAXOSMITHKLINE-A1049751A

PATIENT
  Age: 77 Year
  Sex: Male
  Weight: 67 kg

DRUGS (19)
  1. OFATUMUMAB [Suspect]
     Indication: CHRONIC LYMPHOCYTIC LEUKAEMIA
     Dosage: 1000MG WEEKLY
     Route: 042
     Dates: start: 20131010
  2. INVESTIGATIONAL DRUG [Suspect]
     Indication: CHRONIC LYMPHOCYTIC LEUKAEMIA
     Dosage: 150MG PER DAY
     Route: 048
     Dates: start: 20131010
  3. ACYCLOVIR [Concomitant]
  4. ALLOPURINOL [Concomitant]
  5. CARAFATE [Concomitant]
  6. CEPACOL [Concomitant]
  7. COLACE [Concomitant]
  8. MEPRON [Concomitant]
  9. NYSTATIN [Concomitant]
  10. MUPIROCIN [Concomitant]
  11. OMEPRAZOLE [Concomitant]
  12. PAXIL [Concomitant]
  13. VENTOLIN [Concomitant]
  14. ZOFRAN [Concomitant]
  15. NEULASTA [Concomitant]
     Dates: start: 20131031
  16. PACKED RBC [Concomitant]
     Dates: start: 20131031, end: 20131031
  17. ATOVAQUONE [Concomitant]
     Indication: PNEUMOCYSTIS JIROVECII PNEUMONIA
     Dates: start: 201309
  18. SULFAMETHOXAZOLE + TRIMETHOPRIM [Concomitant]
     Indication: PNEUMOCYSTIS JIROVECII PNEUMONIA
     Dates: start: 2013
  19. PREDNISONE [Concomitant]
     Indication: PNEUMOCYSTIS JIROVECII PNEUMONIA

REACTIONS (2)
  - Febrile neutropenia [Recovered/Resolved]
  - Lung infection [Recovered/Resolved]
